FAERS Safety Report 24118235 (Version 2)
Quarter: 2024Q4

REPORT INFORMATION
  Report Type: Spontaneous
  Country: DE (occurrence: DE)
  Receive Date: 20240722
  Receipt Date: 20241223
  Transmission Date: 20250115
  Serious: Yes (Death)
  Sender: AMGEN
  Company Number: DE-AMGEN-DEUSP2024141858

PATIENT

DRUGS (4)
  1. PEGFILGRASTIM [Suspect]
     Active Substance: PEGFILGRASTIM
     Indication: Prophylaxis
     Dosage: 6 MILLIGRAM ON DAYS 1 AND 15
     Route: 065
  2. FLUDARABINE [Suspect]
     Active Substance: FLUDARABINE PHOSPHATE
     Indication: Chronic lymphocytic leukaemia
     Route: 065
  3. ALEMTUZUMAB [Concomitant]
     Active Substance: ALEMTUZUMAB
     Indication: Chronic lymphocytic leukaemia
     Dosage: 30 MILLIGRAM, 3 TIMES/WK,AT 28 DAY CYCLES
     Route: 058
  4. DEXAMETHASONE [Concomitant]
     Active Substance: DEXAMETHASONE
     Indication: Chronic lymphocytic leukaemia
     Dosage: 40 MILLIGRAM, 1-4 AND 15-18 DAYS (ON DAYS 1-4 AND 15-18),AT 28 DAY CYCLES
     Route: 048

REACTIONS (1)
  - Infection [Fatal]
